FAERS Safety Report 5241465-5 (Version None)
Quarter: 2007Q1

REPORT INFORMATION
  Report Type: 
  Country: None (occurrence: None)
  Receive Date: 20070220
  Receipt Date: 20070206
  Transmission Date: 20070707
  Serious: Yes (Other)
  Sender: FDA-Public Use
  Company Number: DE-AMGEN-UK070298

PATIENT
  Sex: Male
  Weight: 87 kg

DRUGS (2)
  1. NEUPOGEN [Suspect]
     Indication: PRE-EXISTING DISEASE
     Route: 058
     Dates: start: 20030224, end: 20030228
  2. CLOPIDOGREL [Concomitant]

REACTIONS (2)
  - COLON CANCER [None]
  - PNEUMONIA [None]
